FAERS Safety Report 18867410 (Version 1)
Quarter: 2021Q1

REPORT INFORMATION
  Report Type: Spontaneous
  Country: US (occurrence: US)
  Receive Date: 20210209
  Receipt Date: 20210209
  Transmission Date: 20210420
  Serious: Yes (Hospitalization)
  Sender: FDA-Public Use
  Company Number: None

PATIENT
  Age: 84 Year
  Sex: Male
  Weight: 74.8 kg

DRUGS (11)
  1. ENOXAPARIN [Concomitant]
     Active Substance: ENOXAPARIN
     Dates: start: 20210207
  2. METOPROLOL. [Concomitant]
     Active Substance: METOPROLOL
     Dates: start: 20210207
  3. ASPIRIN. [Concomitant]
     Active Substance: ASPIRIN
     Dates: start: 20210207
  4. REGENERON (CASIRIVIMAB/IMDEVIMAB) [Suspect]
     Active Substance: CASIRIVIMAB\IMDEVIMAB
     Indication: COVID-19
     Dosage: ?          OTHER FREQUENCY:ONCE;?
     Route: 042
     Dates: start: 20210207, end: 20210208
  5. ATORVASTATIN [Concomitant]
     Active Substance: ATORVASTATIN
     Dates: start: 20210207
  6. AMLODIPINE [Concomitant]
     Active Substance: AMLODIPINE BESYLATE
     Dates: start: 20210207
  7. AMIODARONE [Concomitant]
     Active Substance: AMIODARONE
     Dates: start: 20210207
  8. FLOMAX [Concomitant]
     Active Substance: TAMSULOSIN HYDROCHLORIDE
     Dates: start: 20210207
  9. HYDRALAZINE [Concomitant]
     Active Substance: HYDRALAZINE HYDROCHLORIDE
     Dates: start: 20210207
  10. FAMOTIDINE. [Concomitant]
     Active Substance: FAMOTIDINE
     Dates: start: 20210207
  11. PROSCAR [Concomitant]
     Active Substance: FINASTERIDE
     Dates: start: 20210207

REACTIONS (1)
  - Pyrexia [None]

NARRATIVE: CASE EVENT DATE: 20210208
